FAERS Safety Report 9754634 (Version 1)
Quarter: 2013Q4

REPORT INFORMATION
  Report Type: Spontaneous
  Country: US (occurrence: US)
  Receive Date: 20131213
  Receipt Date: 20131213
  Transmission Date: 20140711
  Serious: Yes (Hospitalization, Disabling)
  Sender: FDA-Public Use
  Company Number: US-PFIZER INC-2013356268

PATIENT
  Age: 56 Year
  Sex: Female
  Weight: 38.55 kg

DRUGS (9)
  1. PROTONIX [Suspect]
     Indication: GASTROOESOPHAGEAL REFLUX DISEASE
     Dosage: 40 MG, 1X/DAY
     Route: 048
  2. MARINOL [Concomitant]
     Dosage: UNK
  3. SYNTHROID [Concomitant]
     Dosage: UNK
  4. BACLOFEN [Concomitant]
     Dosage: UNK
  5. KLONOPIN [Concomitant]
     Dosage: UNK
  6. ROBAXIN [Concomitant]
     Dosage: UNK
  7. POTASSIUM [Concomitant]
     Dosage: UNK
  8. MIRALAX [Concomitant]
     Indication: CONSTIPATION
     Dosage: UNK, 3X/DAY
  9. PERI-COLACE [Concomitant]
     Dosage: 2 DF, 4X/DAY

REACTIONS (3)
  - Laboratory test abnormal [Unknown]
  - Blood test abnormal [Unknown]
  - Gastrointestinal stoma complication [Unknown]
